FAERS Safety Report 10950178 (Version 1)
Quarter: 2015Q1

REPORT INFORMATION
  Report Type: Spontaneous
  Country: DK (occurrence: CA)
  Receive Date: 20150324
  Receipt Date: 20150324
  Transmission Date: 20150721
  Serious: Yes (Congenital Anomaly, Other)
  Sender: FDA-Public Use
  Company Number: CA-FRI-1000075408

PATIENT
  Age: 0 Year
  Sex: Female

DRUGS (1)
  1. CELEXA [Suspect]
     Active Substance: CITALOPRAM HYDROBROMIDE
     Indication: DEPRESSION
     Route: 064

REACTIONS (7)
  - Drug withdrawal syndrome neonatal [Unknown]
  - Irritability [Unknown]
  - Feeding disorder neonatal [Unknown]
  - Talipes [Not Recovered/Not Resolved]
  - Attention deficit/hyperactivity disorder [Not Recovered/Not Resolved]
  - Foetal exposure during pregnancy [Unknown]
  - Lethargy [Unknown]

NARRATIVE: CASE EVENT DATE: 2005
